FAERS Safety Report 6300062-0 (Version None)
Quarter: 2009Q3

REPORT INFORMATION
  Report Type: 
  Country: None (occurrence: None)
  Receive Date: 20090806
  Receipt Date: 20090728
  Transmission Date: 20100115
  Serious: Yes (Other)
  Sender: FDA-Public Use
  Company Number: GB-ELI_LILLY_AND_COMPANY-GB200907006691

PATIENT
  Sex: Male

DRUGS (3)
  1. ZYPREXA [Suspect]
     Dates: start: 20090101
  2. VALPROATE SODIUM [Concomitant]
  3. RISPERIDONE [Concomitant]

REACTIONS (1)
  - CHRONIC LYMPHOCYTIC LEUKAEMIA [None]
